FAERS Safety Report 16554861 (Version 1)
Quarter: 2019Q3

REPORT INFORMATION
  Report Type: Spontaneous
  Country: VN (occurrence: VN)
  Receive Date: 20190710
  Receipt Date: 20190710
  Transmission Date: 20191004
  Serious: Yes (Other)
  Sender: FDA-Public Use
  Company Number: VN-SHIRE-VN201916969

PATIENT

DRUGS (4)
  1. HUMAN ALBUMIN [Suspect]
     Active Substance: ALBUMIN HUMAN
     Indication: NEPHROTIC SYNDROME
     Dosage: 10 GRAM (75 ML/DAY)
     Route: 042
     Dates: start: 20190520, end: 20190520
  2. LARIX [Concomitant]
     Active Substance: HERBALS
     Indication: PRODUCT USED FOR UNKNOWN INDICATION
  3. HUMAN ALBUMIN [Suspect]
     Active Substance: ALBUMIN HUMAN
     Dosage: 50 MILLILITER
     Route: 065
  4. PREDNISOLON [PREDNISOLONE ACETATE] [Concomitant]
     Indication: PRODUCT USED FOR UNKNOWN INDICATION

REACTIONS (2)
  - Infusion related reaction [Unknown]
  - Anaphylactic reaction [Unknown]
